FAERS Safety Report 5660064-4 (Version None)
Quarter: 2008Q1

REPORT INFORMATION
  Report Type: 
  Country: None (occurrence: None)
  Receive Date: 20080311
  Receipt Date: 20070830
  Transmission Date: 20080703
  Serious: No
  Sender: FDA-Public Use
  Company Number: US-BAYER-200712808BCC

PATIENT
  Age: 67 Year
  Sex: Female
  Weight: 82 kg

DRUGS (8)
  1. ALEVE [Suspect]
     Indication: MUSCULOSKELETAL PAIN
     Dosage: UNIT DOSE: 220 MG
     Route: 048
     Dates: start: 20070824
  2. ARIMIDEX [Concomitant]
  3. DIOVAN [Concomitant]
  4. CELEBREX [Concomitant]
  5. HYDROCHLOROTHIAZIDE [Concomitant]
  6. ASPIRIN [Concomitant]
  7. EQUATE MULTIVITAMIN [Concomitant]
  8. CALCIUM [Concomitant]

REACTIONS (1)
  - STOMACH DISCOMFORT [None]
